FAERS Safety Report 6414997-1 (Version None)
Quarter: 2009Q4

REPORT INFORMATION
  Report Type: 
  Country: None (occurrence: None)
  Receive Date: 20091026
  Receipt Date: 20090527
  Transmission Date: 20100525
  Serious: No
  Sender: FDA-Public Use
  Company Number: US-ABBOTT-09P-163-0576499-00

PATIENT
  Age: 35 Year
  Sex: Female

DRUGS (3)
  1. LUPRON DEPOT [Suspect]
     Indication: ENDOMETRIOSIS
     Route: 050
     Dates: start: 20090515
  2. ADBACK THERAPY [Concomitant]
     Indication: DRUG USE FOR UNKNOWN INDICATION
  3. EFFEXOR [Concomitant]
     Indication: ANXIETY

REACTIONS (6)
  - INSOMNIA [None]
  - MENTAL DISORDER [None]
  - MYALGIA [None]
  - NIGHT SWEATS [None]
  - PARAESTHESIA [None]
  - SUNBURN [None]
